FAERS Safety Report 5353904-X (Version None)
Quarter: 2007Q2

REPORT INFORMATION
  Report Type: 
  Country: None (occurrence: None)
  Receive Date: 20070521
  Receipt Date: 20070205
  Transmission Date: 20071010
  Serious: No
  Sender: FDA-Public Use
  Company Number: WAES 0702USA00640

PATIENT
  Age: 84 Year
  Sex: Female
  Weight: 54.4316 kg

DRUGS (5)
  1. JANUVIA [Suspect]
     Indication: DIABETES MELLITUS NON-INSULIN-DEPENDENT
     Dosage: 100 MG, DAILY, PO
     Route: 048
     Dates: start: 20061201, end: 20070101
  2. BENACOL [Concomitant]
  3. TRICOR [Concomitant]
  4. VYTORIN [Concomitant]
  5. XENICAL [Concomitant]

REACTIONS (1)
  - BLOOD GLUCOSE INCREASED [None]
